FAERS Safety Report 5292425-X (Version None)
Quarter: 2007Q2

REPORT INFORMATION
  Report Type: 
  Country: None (occurrence: None)
  Receive Date: 20070410
  Receipt Date: 20070402
  Transmission Date: 20071010
  Serious: Yes (Hospitalization)
  Sender: FDA-Public Use
  Company Number: FR-SHR-FR-2007-011463

PATIENT
  Age: 76 Year
  Sex: Female

DRUGS (6)
  1. FLUDARA [Suspect]
     Dosage: 60 MG, CYCLE X 5D
     Route: 048
     Dates: start: 20070201, end: 20070201
  2. FLUDARA [Suspect]
     Dosage: 60 MG, CYCLE X 5D
     Route: 048
     Dates: start: 20070301, end: 20070301
  3. SERMION [Concomitant]
  4. KENZEN [Concomitant]
  5. PRIMPERAN INJ [Concomitant]
  6. BACTRIM [Concomitant]

REACTIONS (3)
  - DRUG RASH WITH EOSINOPHILIA AND SYSTEMIC SYMPTOMS [None]
  - EOSINOPHILIA [None]
  - TOXIC SKIN ERUPTION [None]
